FAERS Safety Report 13243915 (Version 6)
Quarter: 2018Q1

REPORT INFORMATION
  Report Type: Spontaneous
  Country: US (occurrence: US)
  Receive Date: 20170216
  Receipt Date: 20180129
  Transmission Date: 20180508
  Serious: Yes (Hospitalization, Other)
  Sender: FDA-Public Use
  Company Number: US-JAZZ-2016-US-006101

PATIENT
  Age: 40 Year
  Sex: Female
  Weight: 84.35 kg

DRUGS (39)
  1. PRIALT [Suspect]
     Active Substance: ZICONOTIDE ACETATE
     Dosage: 0.151 ?G, QH
     Route: 037
     Dates: start: 20160902
  2. BUPIVACAINE. [Suspect]
     Active Substance: BUPIVACAINE
     Dosage: 0.417 MG, QH
     Route: 037
     Dates: start: 20160316
  3. BUPIVACAINE. [Suspect]
     Active Substance: BUPIVACAINE
     Dosage: 0.31 MG, QH
     Route: 037
     Dates: start: 20160915
  4. BUPIVACAINE. [Suspect]
     Active Substance: BUPIVACAINE
     Dosage: 0.32 MG, QH
     Route: 037
     Dates: start: 20161222
  5. BUPIVACAINE. [Suspect]
     Active Substance: BUPIVACAINE
     Dosage: 0.375 MG, QH
     Route: 037
     Dates: start: 20161230
  6. PRIALT [Suspect]
     Active Substance: ZICONOTIDE ACETATE
     Dosage: 0.151 ?G, QH
     Route: 037
     Dates: start: 20160915
  7. CLONIDINE. [Suspect]
     Active Substance: CLONIDINE
     Dosage: 5.06 ?G, QH
     Route: 037
     Dates: start: 20160316
  8. CLONIDINE. [Suspect]
     Active Substance: CLONIDINE
     Dosage: 3.45 ?G, QH
     Route: 037
     Dates: start: 20161222
  9. CLONIDINE. [Suspect]
     Active Substance: CLONIDINE
     Dosage: 4.04 ?G, QH
     Route: 037
     Dates: start: 20161230
  10. PRIALT [Suspect]
     Active Substance: ZICONOTIDE ACETATE
     Dosage: 0.132 ?G, QH
     Route: 037
     Dates: start: 20160523
  11. CLONIDINE. [Suspect]
     Active Substance: CLONIDINE
     Dosage: 4.215 ?G, QH
     Route: 037
     Dates: start: 20160915
  12. PRIALT [Suspect]
     Active Substance: ZICONOTIDE ACETATE
     Indication: PAIN
     Dosage: .082?G, QH
     Route: 037
     Dates: start: 20151231
  13. PRIALT [Suspect]
     Active Substance: ZICONOTIDE ACETATE
     Dosage: .111?G, QH
     Route: 037
     Dates: start: 20160309
  14. PRIALT [Suspect]
     Active Substance: ZICONOTIDE ACETATE
     Dosage: 0.156 ?G, QH
     Route: 037
     Dates: start: 20160810
  15. CLONIDINE. [Suspect]
     Active Substance: CLONIDINE
     Dosage: 4.17 ?G, QH
     Route: 037
     Dates: start: 20160129
  16. PRIALT [Suspect]
     Active Substance: ZICONOTIDE ACETATE
     Dosage: .139?G, QH
     Route: 037
     Dates: start: 20160316
  17. PRIALT [Suspect]
     Active Substance: ZICONOTIDE ACETATE
     Dosage: 0.153 ?G, QH
     Route: 037
     Dates: start: 20161222
  18. PRIALT [Suspect]
     Active Substance: ZICONOTIDE ACETATE
     Dosage: 0.003 ?G, QH
     Route: 037
     Dates: start: 20171120
  19. BUPIVACAINE. [Suspect]
     Active Substance: BUPIVACAINE
     Dosage: 0.313 MG, QH
     Route: 037
     Dates: start: 20160129
  20. BUPIVACAINE. [Suspect]
     Active Substance: BUPIVACAINE
     Dosage: 0.38 MG, QH
     Route: 037
     Dates: start: 20160316
  21. BUPIVACAINE. [Suspect]
     Active Substance: BUPIVACAINE
     Dosage: 0.316 MG, QH
     Route: 037
     Dates: start: 20160902
  22. CLONIDINE. [Suspect]
     Active Substance: CLONIDINE
     Dosage: 4.438 ?G, QH
     Route: 037
     Dates: start: 20160309
  23. CLONIDINE. [Suspect]
     Active Substance: CLONIDINE
     Dosage: 5.556 ?G, QH
     Route: 037
     Dates: start: 20160316
  24. CLONIDINE. [Suspect]
     Active Substance: CLONIDINE
     Dosage: 4.215 ?G, QH
     Route: 037
     Dates: start: 20160902
  25. BUPIVACAINE. [Suspect]
     Active Substance: BUPIVACAINE
     Indication: PAIN
     Dosage: 0.329 MG, QH
     Route: 037
     Dates: start: 20151231
  26. BUPIVACAINE. [Suspect]
     Active Substance: BUPIVACAINE
     Dosage: 0.005 MG, QH
     Route: 037
     Dates: start: 20171114
  27. CLONIDINE. [Suspect]
     Active Substance: CLONIDINE
     Dosage: 5.314 ?G, QH
     Route: 037
     Dates: start: 20160523
  28. PRIALT [Suspect]
     Active Substance: ZICONOTIDE ACETATE
     Dosage: .127?G, QH
     Route: 037
     Dates: start: 20160422
  29. PRIALT [Suspect]
     Active Substance: ZICONOTIDE ACETATE
     Dosage: 0.151 ?G, QH
     Route: 037
     Dates: start: 20160818
  30. PRIALT [Suspect]
     Active Substance: ZICONOTIDE ACETATE
     Dosage: 0.179 ?G, QH
     Route: 037
     Dates: start: 20161230
  31. BUPIVACAINE. [Suspect]
     Active Substance: BUPIVACAINE
     Dosage: 0.398 MG, QH
     Route: 037
     Dates: start: 20160523
  32. BUPIVACAINE. [Suspect]
     Active Substance: BUPIVACAINE
     Dosage: 0.316 MG, QH
     Route: 037
     Dates: start: 20160818
  33. CLONIDINE. [Suspect]
     Active Substance: CLONIDINE
     Indication: PAIN
     Dosage: 4.389 ?G, QH
     Route: 037
     Dates: start: 20151231
  34. CLONIDINE. [Suspect]
     Active Substance: CLONIDINE
     Dosage: 4.356 ?G, QH
     Route: 037
     Dates: start: 20160810
  35. CLONIDINE. [Suspect]
     Active Substance: CLONIDINE
     Dosage: 0.025 ?G, QH
     Route: 037
     Dates: start: 20171114
  36. PRIALT [Suspect]
     Active Substance: ZICONOTIDE ACETATE
     Dosage: .104?G, QH
     Route: 037
     Dates: start: 20160129
  37. BUPIVACAINE. [Suspect]
     Active Substance: BUPIVACAINE
     Dosage: 0.333 MG, QH
     Route: 037
     Dates: start: 20160309
  38. BUPIVACAINE. [Suspect]
     Active Substance: BUPIVACAINE
     Dosage: 0.327 MG, QH
     Route: 037
     Dates: start: 20160810
  39. CLONIDINE. [Suspect]
     Active Substance: CLONIDINE
     Dosage: 4.215 ?G, QH
     Route: 037
     Dates: start: 20160818

REACTIONS (16)
  - Device issue [Recovered/Resolved with Sequelae]
  - Burning sensation [Recovered/Resolved]
  - Neuralgia [Recovered/Resolved]
  - Pain [Recovered/Resolved]
  - Depression [Recovered/Resolved]
  - Medical device site pain [Recovered/Resolved]
  - Cholecystectomy [Unknown]
  - Vomiting [Recovered/Resolved]
  - Flank pain [Not Recovered/Not Resolved]
  - Amnesia [Recovered/Resolved]
  - Fatigue [Recovered/Resolved]
  - Drug ineffective [Not Recovered/Not Resolved]
  - Withdrawal syndrome [Recovered/Resolved]
  - Medical device site irritation [Recovered/Resolved]
  - Feeling abnormal [Recovered/Resolved]
  - Nausea [Recovered/Resolved]

NARRATIVE: CASE EVENT DATE: 20160129
